FAERS Safety Report 7699752-7 (Version None)
Quarter: 2011Q3

REPORT INFORMATION
  Report Type: 
  Country: None (occurrence: None)
  Receive Date: 20110822
  Receipt Date: 20110810
  Transmission Date: 20111222
  Serious: Yes (Hospitalization)
  Sender: FDA-Public Use
  Company Number: US-BIOGENIDEC-2011BI030740

PATIENT
  Age: 51 Year
  Sex: Female

DRUGS (2)
  1. TYSABRI [Suspect]
     Indication: MULTIPLE SCLEROSIS
     Route: 042
     Dates: start: 20110224
  2. TYSABRI [Suspect]
     Route: 042
     Dates: start: 20070201, end: 20070502

REACTIONS (3)
  - CONSTIPATION [None]
  - EAR PAIN [None]
  - CHOLELITHIASIS [None]
